FAERS Safety Report 4486652-9 (Version None)
Quarter: 2004Q4

REPORT INFORMATION
  Report Type: 
  Country: None (occurrence: None)
  Receive Date: 20041027
  Receipt Date: 20041021
  Transmission Date: 20050328
  Serious: Yes (Hospitalization)
  Sender: FDA-Public Use
  Company Number: 200418131US

PATIENT
  Age: 74 Year
  Sex: Male

DRUGS (3)
  1. LANTUS [Suspect]
     Indication: DIABETES MELLITUS NON-INSULIN-DEPENDENT
     Dosage: DOSE UNIT: UNITS
     Dates: start: 20040401
  2. UNKNOWN DRUG [Concomitant]
     Dosage: DOSE: UNK
  3. NORVASC [Concomitant]
     Dosage: DOSE: UNK

REACTIONS (7)
  - BLOOD GLUCOSE DECREASED [None]
  - CARDIAC FAILURE [None]
  - MYOCARDIAL INFARCTION [None]
  - RASH GENERALISED [None]
  - RASH PRURITIC [None]
  - RENAL FAILURE [None]
  - STRESS SYMPTOMS [None]
